FAERS Safety Report 13286194 (Version 1)
Quarter: 2017Q1

REPORT INFORMATION
  Report Type: Spontaneous
  Country: US (occurrence: US)
  Receive Date: 20170302
  Receipt Date: 20170302
  Transmission Date: 20170428
  Serious: No
  Sender: FDA-Public Use
  Company Number: US-ALLERGAN-1000083060

PATIENT
  Sex: Female

DRUGS (2)
  1. VIIBRYD [Suspect]
     Active Substance: VILAZODONE HYDROCHLORIDE
     Dosage: UNK
     Dates: start: 20160224
  2. VIIBRYD [Suspect]
     Active Substance: VILAZODONE HYDROCHLORIDE
     Dosage: UNK
     Dates: end: 20160210

REACTIONS (17)
  - Insomnia [Unknown]
  - Dizziness [Unknown]
  - Confusional state [Unknown]
  - Hypomania [Unknown]
  - Hyperhidrosis [Unknown]
  - Affect lability [Unknown]
  - Agitation [Unknown]
  - Lethargy [Unknown]
  - Nausea [Unknown]
  - Dysphoria [Unknown]
  - Anxiety [Unknown]
  - Headache [Unknown]
  - Irritability [Unknown]
  - Sensory disturbance [Unknown]
  - Paraesthesia [Unknown]
  - Tremor [Unknown]
  - Intentional product misuse [Recovered/Resolved]

NARRATIVE: CASE EVENT DATE: 20160210
